FAERS Safety Report 4688046-X (Version None)
Quarter: 2005Q2

REPORT INFORMATION
  Report Type: 
  Country: None (occurrence: None)
  Receive Date: 20050610
  Receipt Date: 20040223
  Transmission Date: 20051028
  Serious: Yes (Other)
  Sender: FDA-Public Use
  Company Number: CH-ROCHE-359609

PATIENT
  Age: 56 Year
  Sex: Female
  Weight: 64 kg

DRUGS (4)
  1. PEG-INTERFERON ALFA 2A (RO 25-8310) [Suspect]
     Route: 058
     Dates: start: 20011024, end: 20020918
  2. RIBAVIRIN [Suspect]
     Route: 048
     Dates: start: 20011024, end: 20020918
  3. RENITEN [Concomitant]
     Dates: start: 19980315
  4. PREMARIN [Concomitant]
     Dates: start: 20000615

REACTIONS (1)
  - PULMONARY TUBERCULOSIS [None]
